FAERS Safety Report 8261999-9 (Version None)
Quarter: 2012Q2

REPORT INFORMATION
  Report Type: 
  Country: None (occurrence: None)
  Receive Date: 20120402
  Receipt Date: 20120328
  Transmission Date: 20120825
  Serious: Yes (Death, Hospitalization)
  Sender: FDA-Public Use
  Company Number: 2009-197499-NL

PATIENT
  Age: 25 Year
  Sex: Female

DRUGS (4)
  1. DEXAMETHASONE [Suspect]
     Indication: OVARIAN HYPERSTIMULATION SYNDROME
     Dosage: .25 DF;QD;
  2. ASPIRIN [Suspect]
     Indication: PRODUCT USED FOR UNKNOWN INDICATION
  3. PUREGON (FOLLITROPIN BETA /01348901/) [Suspect]
     Indication: ASSISTED FERTILISATION
     Dosage: 980 IU;QD;
     Dates: start: 20090501, end: 20090501
  4. PREGNYL [Suspect]
     Indication: PRODUCT USED FOR UNKNOWN INDICATION
     Dosage: 10000 IU;QD;

REACTIONS (6)
  - INFECTIOUS PERITONITIS [None]
  - RENAL FAILURE [None]
  - DIZZINESS [None]
  - GASTRIC ULCER PERFORATION [None]
  - MULTI-ORGAN FAILURE [None]
  - SEPSIS [None]
